FAERS Safety Report 11130453 (Version 2)
Quarter: 2015Q2

REPORT INFORMATION
  Report Type: Spontaneous
  Country: JP (occurrence: JP)
  Receive Date: 20150522
  Receipt Date: 20150623
  Transmission Date: 20150821
  Serious: Yes (Death, Hospitalization)
  Sender: FDA-Public Use
  Company Number: JP-TAKEDA-2014TJP007521

PATIENT
  Age: 82 Year
  Sex: Male
  Weight: 48.8 kg

DRUGS (16)
  1. TAKEPRON OD TABLETS 15 [Suspect]
     Active Substance: LANSOPRAZOLE
     Indication: GASTROOESOPHAGEAL REFLUX DISEASE
     Dosage: 15 MG, QD
     Route: 048
     Dates: start: 20100428, end: 20101114
  2. ISCOTIN [Suspect]
     Active Substance: ISONIAZID
     Dosage: 300 MG, QD
     Route: 048
     Dates: start: 20100916, end: 20101001
  3. EBUTOL [Suspect]
     Active Substance: ETHAMBUTOL HYDROCHLORIDE
     Dosage: 750 MG, QD
     Route: 048
     Dates: start: 20100916, end: 20101001
  4. LENDORMIN [Concomitant]
     Active Substance: BROTIZOLAM
     Dosage: 0.25 MG, QD
     Route: 048
     Dates: start: 20100428, end: 20130801
  5. SPIRIVA [Concomitant]
     Active Substance: TIOTROPIUM BROMIDE MONOHYDRATE
     Dosage: 2 DF, QD
     Route: 050
     Dates: start: 20100901, end: 20110708
  6. APTECIN [Suspect]
     Active Substance: RIFAMPIN
     Indication: DISSEMINATED TUBERCULOSIS
     Dosage: 450 MG, QD
     Route: 048
     Dates: start: 20100428, end: 20100824
  7. VITAMEDIN                          /00274301/ [Concomitant]
     Indication: PROPHYLAXIS
     Dosage: 1 DF, TID
     Route: 048
     Dates: start: 20100428, end: 20101001
  8. SULTAMUGIN [Concomitant]
     Dosage: 1 G, BID
     Route: 042
     Dates: start: 20100825, end: 20100901
  9. RESTAMIN                           /00000401/ [Concomitant]
     Dosage: UNK
     Route: 062
     Dates: start: 20100907, end: 201010
  10. CRAVIT [Suspect]
     Active Substance: LEVOFLOXACIN
     Indication: DISSEMINATED TUBERCULOSIS
     Dosage: 250 MG, QD
     Route: 048
     Dates: start: 20100916, end: 20101001
  11. VITAMEDIN INTRAVENOUS [Concomitant]
     Active Substance: CYANOCOBALAMIN\PYRIDOXINE HYDROCHLORIDE\THIAMINE
     Indication: PROPHYLAXIS
     Dosage: 1 DF, QD
     Route: 042
     Dates: start: 20100825, end: 20100830
  12. ISCOTIN [Suspect]
     Active Substance: ISONIAZID
     Indication: DISSEMINATED TUBERCULOSIS
     Dosage: 250 MG, QD
     Route: 048
     Dates: start: 20100428, end: 20100824
  13. EBUTOL [Suspect]
     Active Substance: ETHAMBUTOL HYDROCHLORIDE
     Indication: DISSEMINATED TUBERCULOSIS
     Dosage: 750 MG, QD
     Route: 048
     Dates: start: 20100428, end: 20100624
  14. STREPTOMYCIN SULFATE. [Suspect]
     Active Substance: STREPTOMYCIN SULFATE
     Indication: DISSEMINATED TUBERCULOSIS
     Dosage: 0.5 G, QOD
     Route: 030
     Dates: start: 20100916, end: 20101001
  15. JUZENTAIHOTO                       /07985601/ [Concomitant]
     Dosage: 2.5 G, QD
     Route: 048
     Dates: start: 20100904, end: 20101001
  16. HACHIAZULE                         /00523101/ [Concomitant]
     Dosage: 1 DF, TID
     Route: 048
     Dates: start: 20100910, end: 20100926

REACTIONS (2)
  - Pneumonia [Fatal]
  - Pancytopenia [Fatal]

NARRATIVE: CASE EVENT DATE: 20100819
